FAERS Safety Report 9503272 (Version 1)
Quarter: 2013Q3

REPORT INFORMATION
  Report Type: Spontaneous
  Country: US (occurrence: US)
  Receive Date: 20130906
  Receipt Date: 20130906
  Transmission Date: 20140515
  Serious: Yes (Hospitalization)
  Sender: FDA-Public Use
  Company Number: US-ASTRAZENECA-2013SE66613

PATIENT
  Sex: Male

DRUGS (1)
  1. PULMICORT RESPULES [Suspect]
     Route: 055

REACTIONS (2)
  - Pain [Unknown]
  - Intentional drug misuse [Unknown]
